FAERS Safety Report 6349024-8 (Version None)
Quarter: 2009Q3

REPORT INFORMATION
  Report Type: 
  Country: None (occurrence: None)
  Receive Date: 20090911
  Receipt Date: 20090901
  Transmission Date: 20100115
  Serious: Yes (Other)
  Sender: FDA-Public Use
  Company Number: US-AVENTIS-200917864US

PATIENT
  Sex: Female
  Weight: 81.82 kg

DRUGS (7)
  1. LOVENOX [Suspect]
     Indication: THROMBOSIS PROPHYLAXIS
     Dates: start: 20090801, end: 20090801
  2. TRILEPTAL [Concomitant]
     Dosage: DOSE: UNK
  3. NITROFURANTOIN [Concomitant]
     Dosage: DOSE: UNK
  4. SIMVASTAIN [Concomitant]
     Dosage: DOSE: UNK
  5. INCONTINENCE PILL [Concomitant]
     Dosage: DOSE: UNK
  6. CALCIUM [Concomitant]
     Dosage: DOSE: UNK
  7. ASPIRIN [Concomitant]
     Dosage: DOSE: UNK

REACTIONS (5)
  - ASTHENIA [None]
  - BALANCE DISORDER [None]
  - CONFUSIONAL STATE [None]
  - PETIT MAL EPILEPSY [None]
  - UNRESPONSIVE TO STIMULI [None]
